FAERS Safety Report 5267616-4 (Version None)
Quarter: 2007Q1

REPORT INFORMATION
  Report Type: 
  Country: None (occurrence: None)
  Receive Date: 20070316
  Receipt Date: 20070307
  Transmission Date: 20070707
  Serious: Yes (Hospitalization, Other)
  Sender: FDA-Public Use
  Company Number: CZ-ABBOTT-07P-217-0361269-00

PATIENT
  Age: 59 Year
  Sex: Male
  Weight: 61.5 kg

DRUGS (5)
  1. ZEMPLAR [Suspect]
     Indication: RENAL OSTEODYSTROPHY
     Route: 042
     Dates: start: 20060802
  2. ACETYLSALICYLIC ACID SRT [Concomitant]
     Indication: CARDIOVASCULAR EVENT PROPHYLAXIS
     Route: 048
     Dates: start: 20050921
  3. COXTRAL [Concomitant]
     Indication: MUSCULOSKELETAL PAIN
     Route: 048
     Dates: start: 20070223
  4. SEVELAMER HYDROCHLORIDE [Concomitant]
     Indication: HYPERPHOSPHATAEMIA
     Route: 048
     Dates: start: 20060316
  5. AMLODIPINE BESYLATE [Concomitant]
     Indication: HYPERTENSION
     Route: 048
     Dates: start: 20061018

REACTIONS (2)
  - MOVEMENT DISORDER [None]
  - MUSCULOSKELETAL PAIN [None]
